FAERS Safety Report 19233596 (Version 2)
Quarter: 2021Q4

REPORT INFORMATION
  Report Type: Spontaneous
  Country: US (occurrence: None)
  Receive Date: 20210507
  Receipt Date: 20211201
  Transmission Date: 20220303
  Serious: Yes (Other)
  Sender: FDA-Public Use
  Company Number: 2021A390641

PATIENT
  Age: 21699 Day
  Sex: Female
  Weight: 113.4 kg

DRUGS (41)
  1. PRILOSEC [Suspect]
     Active Substance: OMEPRAZOLE MAGNESIUM
     Indication: Gastrooesophageal reflux disease
     Dosage: 20-40 MG DAILY
     Route: 048
     Dates: start: 2012, end: 2018
  2. PRILOSEC [Suspect]
     Active Substance: OMEPRAZOLE MAGNESIUM
     Indication: Gastrooesophageal reflux disease
     Dosage: GENERIC
     Route: 065
     Dates: start: 2012, end: 2016
  3. PRILOSEC OTC [Suspect]
     Active Substance: OMEPRAZOLE MAGNESIUM
     Indication: Gastrooesophageal reflux disease
     Route: 048
     Dates: start: 2012, end: 2018
  4. NEXIUM [Suspect]
     Active Substance: ESOMEPRAZOLE MAGNESIUM
     Indication: Gastrooesophageal reflux disease
     Dosage: 20-40 MG DAILY
     Route: 048
     Dates: start: 2011, end: 2018
  5. NEXIUM 24HR [Suspect]
     Active Substance: ESOMEPRAZOLE MAGNESIUM
     Indication: Gastrooesophageal reflux disease
     Route: 048
     Dates: start: 2011, end: 2018
  6. PREVACID 24 HR [Suspect]
     Active Substance: LANSOPRAZOLE
     Indication: Gastrooesophageal reflux disease
     Route: 065
     Dates: start: 2011, end: 2018
  7. PROTONIX [Suspect]
     Active Substance: PANTOPRAZOLE SODIUM
     Indication: Gastrooesophageal reflux disease
     Route: 065
     Dates: start: 2012, end: 2018
  8. PROTONIX [Suspect]
     Active Substance: PANTOPRAZOLE SODIUM
     Indication: Gastrooesophageal reflux disease
     Route: 065
     Dates: start: 2017
  9. OXYCODONE HYDROCHLORIDE [Concomitant]
     Active Substance: OXYCODONE HYDROCHLORIDE
  10. AMITRIPTYLINE HYDROCHLORIDE [Concomitant]
     Active Substance: AMITRIPTYLINE HYDROCHLORIDE
  11. INSULIN NOS [Concomitant]
     Active Substance: INSULIN NOS
  12. GLIPIZIDE [Concomitant]
     Active Substance: GLIPIZIDE
  13. LISINOPRIL [Concomitant]
     Active Substance: LISINOPRIL
  14. LEVEMIR [Concomitant]
     Active Substance: INSULIN DETEMIR
  15. LINZESS [Concomitant]
     Active Substance: LINACLOTIDE
  16. ALLOPURINOL [Concomitant]
     Active Substance: ALLOPURINOL
  17. GLUCAGON [Concomitant]
     Active Substance: GLUCAGON
  18. ATORVASTATIN [Concomitant]
     Active Substance: ATORVASTATIN
  19. AMOXICILLIN\CLAVULANATE POTASSIUM [Concomitant]
     Active Substance: AMOXICILLIN\CLAVULANATE POTASSIUM
  20. ACETAMINOPHEN\HYDROCODONE BITARTRATE [Concomitant]
     Active Substance: ACETAMINOPHEN\HYDROCODONE BITARTRATE
  21. NITROGLYCERIN [Concomitant]
     Active Substance: NITROGLYCERIN
  22. VITAMINS [Concomitant]
     Active Substance: VITAMINS
  23. ACETONE [Concomitant]
     Active Substance: ACETONE
  24. VITAMIN D [Concomitant]
     Active Substance: VITAMIN D NOS
  25. METFORMIN [Concomitant]
     Active Substance: METFORMIN HYDROCHLORIDE
  26. LACTULOSE [Concomitant]
     Active Substance: LACTULOSE
  27. BYDUREON [Concomitant]
     Active Substance: EXENATIDE
  28. FARXIGA [Concomitant]
     Active Substance: DAPAGLIFLOZIN PROPANEDIOL
  29. TIZANIDINE [Concomitant]
     Active Substance: TIZANIDINE
  30. FERUMOXYTOL [Concomitant]
     Active Substance: FERUMOXYTOL
  31. HYDROCHLOROTHIAZIDE [Concomitant]
     Active Substance: HYDROCHLOROTHIAZIDE
  32. COREG [Concomitant]
     Active Substance: CARVEDILOL
  33. FLUOXETINE [Concomitant]
     Active Substance: FLUOXETINE HYDROCHLORIDE
  34. DOXYCYCLINE [Concomitant]
     Active Substance: DOXYCYCLINE
  35. MELOXICAM [Concomitant]
     Active Substance: MELOXICAM
  36. CIPROFLOXACIN [Concomitant]
     Active Substance: CIPROFLOXACIN
  37. PEPCID [Concomitant]
     Active Substance: FAMOTIDINE
  38. ALKA-SELTZER [Concomitant]
     Active Substance: ANHYDROUS CITRIC ACID\ASPIRIN\SODIUM BICARBONATE
  39. TUMS [Concomitant]
     Active Substance: CALCIUM CARBONATE
  40. LOVASTATIN [Concomitant]
     Active Substance: LOVASTATIN
  41. IRON [Concomitant]
     Active Substance: IRON

REACTIONS (5)
  - Chronic kidney disease [Not Recovered/Not Resolved]
  - End stage renal disease [Not Recovered/Not Resolved]
  - Acute kidney injury [Not Recovered/Not Resolved]
  - Renal failure [Unknown]
  - Nephrogenic anaemia [Unknown]

NARRATIVE: CASE EVENT DATE: 20180411
